FAERS Safety Report 6274330-5 (Version None)
Quarter: 2009Q3

REPORT INFORMATION
  Report Type: 
  Country: None (occurrence: None)
  Receive Date: 20090720
  Receipt Date: 20090708
  Transmission Date: 20100115
  Serious: Yes (Hospitalization)
  Sender: FDA-Public Use
  Company Number: FR-WYE-H10119209

PATIENT
  Sex: Male

DRUGS (7)
  1. PANTOPRAZOLE SODIUM [Suspect]
     Dosage: 20 MG DAILY FROM AN UNKNOWN DATE TO 30-MAY-2009
     Route: 048
  2. DIGOXIN [Suspect]
     Dosage: 1 DOSAGE FORM DAILY FROM AN UNKNOWN DATE TO 30-MAY-2009
     Route: 048
  3. SINGULAIR [Suspect]
     Dosage: 10 MG DAILY FROM AN UNKNOWN DATE TO 31-MAY-2009
     Route: 048
  4. SOLUPRED [Suspect]
     Dosage: 10 MG DAILY FROM AND UNKNOWN DATE TO 30-MAY-2009
     Route: 048
  5. SERETIDE [Suspect]
     Dosage: 4 DOSAGE FOMS FROM AN UNKNOWN DATE TO 30-MAY-2009
     Route: 055
  6. PREVISCAN [Suspect]
     Dosage: UNKNOWN DOSE FROM UNKNOWN DATE TO 02-JUN-2009
     Route: 048
  7. SPIRIVA [Suspect]
     Dosage: 18 MCG FROM AN UNKNOWN DATE TO 30-MAY-2009
     Route: 055

REACTIONS (3)
  - COUGH [None]
  - DYSPNOEA [None]
  - LEUKOCYTOCLASTIC VASCULITIS [None]
